FAERS Safety Report 19936764 (Version 2)
Quarter: 2024Q1

REPORT INFORMATION
  Report Type: Report from Study
  Country: US (occurrence: US)
  Receive Date: 20211009
  Receipt Date: 20240331
  Transmission Date: 20240410
  Serious: Yes (Other)
  Sender: FDA-Public Use
  Company Number: US-NOVARTISPH-NVSC2021US226199

PATIENT
  Sex: Female

DRUGS (1)
  1. KESIMPTA [Suspect]
     Active Substance: OFATUMUMAB
     Indication: Relapsing multiple sclerosis
     Dosage: 20 MG, QMO
     Route: 058
     Dates: start: 20210919

REACTIONS (6)
  - Diabetes mellitus [Unknown]
  - Blood glucose increased [Unknown]
  - Malaise [Unknown]
  - Diverticulum [Unknown]
  - Abdominal distension [Unknown]
  - Productive cough [Unknown]
